FAERS Safety Report 6928725-4 (Version None)
Quarter: 2010Q3

REPORT INFORMATION
  Report Type: 
  Country: None (occurrence: None)
  Receive Date: 20100817
  Receipt Date: 20100810
  Transmission Date: 20110219
  Serious: Yes (Hospitalization)
  Sender: FDA-Public Use
  Company Number: B0670199A

PATIENT
  Age: 6 Year
  Sex: Female
  Weight: 24 kg

DRUGS (1)
  1. CEFUROXIME [Suspect]
     Indication: PRODUCT USED FOR UNKNOWN INDICATION
     Dosage: 15ML TWICE PER DAY
     Route: 065
     Dates: start: 20100808

REACTIONS (1)
  - CHEST DISCOMFORT [None]
